FAERS Safety Report 18880336 (Version 1)
Quarter: 2021Q1

REPORT INFORMATION
  Report Type: Report from Study
  Country: None (occurrence: RO)
  Receive Date: 20210211
  Receipt Date: 20210211
  Transmission Date: 20210420
  Serious: Yes (Death)
  Sender: FDA-Public Use
  Company Number: RO-ABBVIE-21K-135-3769531-00

PATIENT
  Age: 82 Year
  Sex: Female

DRUGS (4)
  1. EXVIERA [Suspect]
     Active Substance: DASABUVIR
     Indication: HEPATIC CIRRHOSIS
  2. VIEKIRAX [Suspect]
     Active Substance: OMBITASVIR\PARITAPREVIR\RITONAVIR
     Indication: HEPATIC CIRRHOSIS
  3. EXVIERA [Suspect]
     Active Substance: DASABUVIR
     Indication: HEPATITIS C
     Route: 048
     Dates: start: 20200901, end: 20201123
  4. VIEKIRAX [Suspect]
     Active Substance: OMBITASVIR\PARITAPREVIR\RITONAVIR
     Indication: HEPATITIS C
     Route: 048
     Dates: start: 20200901, end: 20201123

REACTIONS (1)
  - Cerebrovascular accident [Fatal]

NARRATIVE: CASE EVENT DATE: 20201127
